FAERS Safety Report 7011851-1 (Version None)
Quarter: 2010Q3

REPORT INFORMATION
  Report Type: 
  Country: None (occurrence: None)
  Receive Date: 20100924
  Receipt Date: 20100914
  Transmission Date: 20110219
  Serious: Yes (Hospitalization, Other)
  Sender: FDA-Public Use
  Company Number: US-ASTRAZENECA-2010SE30316

PATIENT
  Age: 27343 Day
  Sex: Male
  Weight: 83.5 kg

DRUGS (6)
  1. CRESTOR [Suspect]
     Indication: HYPERLIPIDAEMIA
     Route: 048
     Dates: start: 20100428, end: 20100602
  2. AVODART [Concomitant]
  3. LISINOPRIL [Concomitant]
  4. NIASPAN [Concomitant]
  5. ALLOPURINOL [Concomitant]
  6. COREG [Concomitant]

REACTIONS (6)
  - DEHYDRATION [None]
  - NAUSEA [None]
  - RENAL FAILURE ACUTE [None]
  - RENAL TUBULAR NECROSIS [None]
  - TUBULOINTERSTITIAL NEPHRITIS [None]
  - VOMITING [None]
